FAERS Safety Report 22159972 (Version 1)
Quarter: 2023Q1

REPORT INFORMATION
  Report Type: Spontaneous
  Country: US (occurrence: None)
  Receive Date: 20230330
  Receipt Date: 20230330
  Transmission Date: 20230417
  Serious: Yes (Life-Threatening, Hospitalization)
  Sender: FDA-Public Use
  Company Number: None

PATIENT
  Age: 69 Year
  Sex: Male
  Weight: 76.6 kg

DRUGS (1)
  1. ABECMA [Suspect]
     Active Substance: IDECABTAGENE VICLEUCEL
     Indication: Plasma cell myeloma
     Dosage: FREQUENCY : ONCE;?
     Route: 042
     Dates: start: 20221207, end: 20221207

REACTIONS (5)
  - Cytokine release syndrome [None]
  - Mental status changes [None]
  - Immune effector cell-associated neurotoxicity syndrome [None]
  - Somnolence [None]
  - Feeding disorder [None]

NARRATIVE: CASE EVENT DATE: 20221208
